FAERS Safety Report 17352147 (Version 1)
Quarter: 2020Q1

REPORT INFORMATION
  Report Type: Spontaneous
  Country: US (occurrence: US)
  Receive Date: 20200130
  Receipt Date: 20200130
  Transmission Date: 20200409
  Serious: No
  Sender: FDA-Public Use
  Company Number: US-INCYTE CORPORATION-2020IN000882

PATIENT

DRUGS (1)
  1. JAKAFI [Suspect]
     Active Substance: RUXOLITINIB
     Dosage: 5 MILLIGRAM, BID
     Route: 048
     Dates: start: 20200107

REACTIONS (6)
  - Blood potassium increased [Unknown]
  - Blood cholesterol increased [Unknown]
  - Haemoglobin increased [Unknown]
  - Carbon dioxide decreased [Unknown]
  - Blood creatinine increased [Unknown]
  - Blood sodium increased [Unknown]
